FAERS Safety Report 8296111-3 (Version None)
Quarter: 2012Q2

REPORT INFORMATION
  Report Type: 
  Country: None (occurrence: None)
  Receive Date: 20120418
  Receipt Date: 20120412
  Transmission Date: 20120825
  Serious: Yes (Hospitalization)
  Sender: FDA-Public Use
  Company Number: US-GLAXOSMITHKLINE-A0973865A

PATIENT
  Age: 63 Year
  Sex: Male
  Weight: 100 kg

DRUGS (7)
  1. AVANDIA [Suspect]
     Indication: DIABETES MELLITUS
     Dosage: 8MG PER DAY
     Route: 048
     Dates: end: 20070701
  2. GLYBURIDE [Concomitant]
  3. AMITRIPTYLINE HCL [Concomitant]
  4. METFORMIN HCL [Concomitant]
  5. GABAPENTIN [Concomitant]
  6. LISINOPRIL [Concomitant]
  7. METOPROLOL TARTRATE [Concomitant]

REACTIONS (4)
  - MYOCARDIAL INFARCTION [None]
  - CEREBROVASCULAR ACCIDENT [None]
  - CARDIAC FAILURE CONGESTIVE [None]
  - CORONARY ARTERY DISEASE [None]
